FAERS Safety Report 20383058 (Version 1)
Quarter: 2022Q1

REPORT INFORMATION
  Report Type: Spontaneous
  Country: US (occurrence: None)
  Receive Date: 20220126
  Receipt Date: 20220126
  Transmission Date: 20220423
  Serious: No
  Sender: FDA-Public Use
  Company Number: None

PATIENT

DRUGS (2)
  1. ADRENALIN [Suspect]
     Active Substance: EPINEPHRINE
     Route: 041
  2. RETACRIT [Suspect]
     Active Substance: EPOETIN ALFA-EPBX
     Dosage: OTHER STRENGTH : 10000 UNITS/ML;?

REACTIONS (2)
  - Product storage error [None]
  - Product appearance confusion [None]
